FAERS Safety Report 5728855-9 (Version None)
Quarter: 2008Q2

REPORT INFORMATION
  Report Type: 
  Country: None (occurrence: None)
  Receive Date: 20080506
  Receipt Date: 20080430
  Transmission Date: 20081010
  Serious: Yes (Other)
  Sender: FDA-Public Use
  Company Number: US-ASTRAZENECA-2007UW12370

PATIENT
  Age: 71 Year
  Sex: Female
  Weight: 79.4 kg

DRUGS (1)
  1. ARIMIDEX [Suspect]
     Indication: BREAST CANCER
     Route: 048
     Dates: start: 20061001

REACTIONS (6)
  - ARTHRALGIA [None]
  - BLOOD UREA INCREASED [None]
  - DYSPNOEA [None]
  - HOT FLUSH [None]
  - SPINAL COLUMN STENOSIS [None]
  - WRIST FRACTURE [None]
